FAERS Safety Report 7462847-7 (Version None)
Quarter: 2011Q2

REPORT INFORMATION
  Report Type: 
  Country: None (occurrence: None)
  Receive Date: 20110506
  Receipt Date: 20110428
  Transmission Date: 20111010
  Serious: Yes (Hospitalization)
  Sender: FDA-Public Use
  Company Number: US-B.I. PHARMACEUTICALS,INC./RIDGEFIELD-2011-BP-12080BP

PATIENT
  Sex: Male

DRUGS (12)
  1. IBUPROFEN [Concomitant]
  2. FOLIC ACID [Concomitant]
  3. PROAIR HFA [Concomitant]
  4. VITAMIN B-12 [Concomitant]
  5. AMLODIPINE BESYLATE [Concomitant]
  6. SPIRIVA [Suspect]
     Indication: CHRONIC OBSTRUCTIVE PULMONARY DISEASE
  7. TAMSULOSIN HCL [Concomitant]
  8. SENNA PLUS [Concomitant]
  9. MULTI-VITAMIN [Concomitant]
  10. ADVAIR DISKUS 100/50 [Concomitant]
  11. METOPROLOL SUCCINATE [Concomitant]
  12. PATNYTOINEX [Concomitant]

REACTIONS (3)
  - CONVULSION [None]
  - DYSPNOEA [None]
  - NASAL CONGESTION [None]
